FAERS Safety Report 9799727 (Version 2)
Quarter: 2014Q1

REPORT INFORMATION
  Report Type: Spontaneous
  Country: US (occurrence: US)
  Receive Date: 20140106
  Receipt Date: 20140106
  Transmission Date: 20141002
  Serious: No
  Sender: FDA-Public Use
  Company Number: US-GILEAD-2010-0032700

PATIENT
  Age: 66 Year
  Sex: Female
  Weight: 52.16 kg

DRUGS (12)
  1. LETAIRIS [Suspect]
     Indication: PULMONARY ARTERIAL HYPERTENSION
     Route: 048
     Dates: start: 20100817, end: 20101007
  2. REVATIO [Concomitant]
  3. SILDENAFIL [Concomitant]
  4. TORSEMIDE [Concomitant]
  5. LABETALOL [Concomitant]
  6. CRESTOR [Concomitant]
  7. LASIX [Concomitant]
  8. WARFARIN [Concomitant]
  9. SPIRONOLACTONE [Concomitant]
  10. BONIVA [Concomitant]
  11. ACTONEL [Concomitant]
  12. METOLAZONE [Concomitant]

REACTIONS (2)
  - Fluid retention [Recovered/Resolved]
  - Nasal congestion [Recovered/Resolved]
